FAERS Safety Report 10635999 (Version 3)
Quarter: 2014Q4

REPORT INFORMATION
  Report Type: Spontaneous
  Country: AU (occurrence: AU)
  Receive Date: 20141205
  Receipt Date: 20141219
  Transmission Date: 20150529
  Serious: Yes (Other)
  Sender: FDA-Public Use
  Company Number: AU-PFIZER INC-2009284598

PATIENT
  Age: 64 Year
  Sex: Female

DRUGS (3)
  1. LITHIUM [Concomitant]
     Active Substance: LITHIUM CARBONATE
     Dosage: 375 MG, 2X/DAY(AS 1.5 X 250 MG TABLETS IN THE MORNING AND NIGHT)
  2. LYRICA [Suspect]
     Active Substance: PREGABALIN
     Dosage: 50 MG, 2X/DAY (AS 2X25 CAP IN THE MORNING AND EVENING)
  3. LYRICA [Suspect]
     Active Substance: PREGABALIN
     Indication: PAIN
     Dosage: 75 MG, 1X/DAY

REACTIONS (5)
  - Somnolence [Unknown]
  - Suicidal ideation [Unknown]
  - Blood glucose decreased [Recovered/Resolved]
  - Depressed level of consciousness [Unknown]
  - Myopia [Not Recovered/Not Resolved]
